FAERS Safety Report 6059204-7 (Version None)
Quarter: 2009Q1

REPORT INFORMATION
  Report Type: 
  Country: None (occurrence: None)
  Receive Date: 20090130
  Receipt Date: 20090123
  Transmission Date: 20090719
  Serious: Yes (Hospitalization)
  Sender: FDA-Public Use
  Company Number: US-ABBOTT-09P-163-0499483-00

PATIENT
  Sex: Female
  Weight: 49.94 kg

DRUGS (3)
  1. AZMACORT [Suspect]
     Indication: CHRONIC OBSTRUCTIVE PULMONARY DISEASE
     Dates: start: 19840101
  2. AZMACORT [Suspect]
     Indication: ASTHMA
  3. DECLINED LIST [Concomitant]
     Indication: DRUG USE FOR UNKNOWN INDICATION

REACTIONS (3)
  - DEVICE MALFUNCTION [None]
  - DYSPNOEA [None]
  - MYOCARDIAL INFARCTION [None]
